FAERS Safety Report 7869664-4 (Version None)
Quarter: 2011Q4

REPORT INFORMATION
  Report Type: 
  Country: None (occurrence: None)
  Receive Date: 20111028
  Receipt Date: 20111028
  Transmission Date: 20120403
  Serious: No
  Sender: FDA-Public Use
  Company Number: None

PATIENT
  Age: 48 Year
  Sex: Male

DRUGS (7)
  1. RENVELA [Concomitant]
  2. LISINOPRIL [Concomitant]
  3. DEXAMETHASONE [Concomitant]
  4. REVLIMID [Suspect]
     Indication: MULTIPLE MYELOMA
     Dosage: 25MG DAILY ORALLY
     Route: 048
     Dates: start: 20110929
  5. ACYCLOVIR [Concomitant]
  6. ALLOPURINOL [Concomitant]
  7. GABAPENTIN [Concomitant]

REACTIONS (2)
  - PRURITUS [None]
  - SWELLING [None]
